FAERS Safety Report 7991824-2 (Version None)
Quarter: 2011Q4

REPORT INFORMATION
  Report Type: 
  Country: None (occurrence: None)
  Receive Date: 20111219
  Receipt Date: 20111216
  Transmission Date: 20120403
  Serious: No
  Sender: FDA-Public Use
  Company Number: US-PFIZER INC-2011306897

PATIENT
  Sex: Male
  Weight: 77.098 kg

DRUGS (4)
  1. ASPIRIN [Concomitant]
     Indication: CARDIAC DISORDER
     Dosage: 81 MG, DAILY
     Dates: start: 20110101
  2. ATENOLOL [Concomitant]
     Indication: HYPERTENSION
     Dosage: 50MG HALF A TABLET, UNK
  3. LIPITOR [Suspect]
     Dosage: 20 MG, DAILY AT NIGHT
     Dates: start: 20110821
  4. GABAPENTIN [Concomitant]
     Indication: BACK PAIN
     Dosage: 300 MG, DAILY

REACTIONS (2)
  - PAIN IN EXTREMITY [None]
  - ARTHRALGIA [None]
